FAERS Safety Report 17367199 (Version 2)
Quarter: 2020Q1

REPORT INFORMATION
  Report Type: Spontaneous
  Country: JP (occurrence: JP)
  Receive Date: 20200204
  Receipt Date: 20200227
  Transmission Date: 20200409
  Serious: Yes (Hospitalization)
  Sender: FDA-Public Use
  Company Number: JP-GILEAD-2020-0449348

PATIENT
  Age: 82 Year
  Sex: Female

DRUGS (8)
  1. EPCLUSA [Suspect]
     Active Substance: SOFOSBUVIR\VELPATASVIR
     Indication: HEPATITIS C
     Dosage: 1 DOSAGE FORM, QD
     Route: 048
     Dates: start: 20191105
  2. ZINC. [Concomitant]
     Active Substance: ZINC
  3. AMINOLEBAN [Concomitant]
     Active Substance: AMINO ACIDS, SOURCE UNSPECIFIED
  4. PIARLE [Concomitant]
     Active Substance: LACTULOSE
  5. EPCLUSA [Suspect]
     Active Substance: SOFOSBUVIR\VELPATASVIR
     Indication: HEPATIC CIRRHOSIS
     Dosage: 1 DOSAGE FORM, QD
     Route: 048
     Dates: start: 201912, end: 20200206
  6. TOFRANIL [Concomitant]
     Active Substance: IMIPRAMINE HYDROCHLORIDE
  7. RISEDRONATE NA [Concomitant]
     Active Substance: RISEDRONATE SODIUM
  8. CALFINA [ALFACALCIDOL] [Concomitant]
     Active Substance: ALFACALCIDOL

REACTIONS (4)
  - Alanine aminotransferase increased [Recovering/Resolving]
  - Blood albumin decreased [Unknown]
  - Treatment noncompliance [Recovered/Resolved]
  - Platelet count decreased [Unknown]

NARRATIVE: CASE EVENT DATE: 201911
